FAERS Safety Report 9779759 (Version 3)
Quarter: 2014Q2

REPORT INFORMATION
  Report Type: Spontaneous
  Country: US (occurrence: US)
  Receive Date: 20131223
  Receipt Date: 20140417
  Transmission Date: 20141212
  Serious: Yes (Hospitalization)
  Sender: FDA-Public Use
  Company Number: US-GLAXOSMITHKLINE-A1054521A

PATIENT
  Age: 62 Year
  Sex: Male

DRUGS (1)
  1. ADVAIR [Suspect]
     Indication: ASTHMA
     Route: 065
     Dates: start: 20031115

REACTIONS (4)
  - Cerebrovascular accident [Unknown]
  - Disability [Not Recovered/Not Resolved]
  - Aphasia [Unknown]
  - Investigation [Unknown]
